FAERS Safety Report 5128266-3 (Version None)
Quarter: 2006Q4

REPORT INFORMATION
  Report Type: 
  Country: None (occurrence: None)
  Receive Date: 20061017
  Receipt Date: 20061005
  Transmission Date: 20070319
  Serious: Yes (Hospitalization)
  Sender: FDA-Public Use
  Company Number: FR-BAYER-200610940BFR

PATIENT
  Age: 35 Year
  Sex: Male

DRUGS (5)
  1. MOXIFLOXACIN HYDROCHLORIDE [Suspect]
     Indication: LUNG DISORDER
     Route: 048
     Dates: start: 20060804, end: 20060808
  2. DIANTALVIC [Suspect]
     Indication: UNEVALUABLE EVENT
     Route: 048
     Dates: start: 20060724, end: 20060729
  3. PYOSTACINE [Suspect]
     Indication: LUNG DISORDER
     Route: 048
     Dates: start: 20060804, end: 20060806
  4. TEXODIL [Suspect]
     Indication: LUNG DISORDER
     Route: 048
     Dates: start: 20060725, end: 20060803
  5. SULFASALAZINE [Concomitant]
     Indication: UNEVALUABLE EVENT
     Route: 048
     Dates: start: 19940101, end: 20060811

REACTIONS (9)
  - ALANINE AMINOTRANSFERASE INCREASED [None]
  - ASPARTATE AMINOTRANSFERASE INCREASED [None]
  - BLOOD ALKALINE PHOSPHATASE INCREASED [None]
  - CHOLESTASIS [None]
  - CYTOLYTIC HEPATITIS [None]
  - DIARRHOEA [None]
  - GAMMA-GLUTAMYLTRANSFERASE INCREASED [None]
  - GENERAL PHYSICAL HEALTH DETERIORATION [None]
  - WEIGHT DECREASED [None]
